FAERS Safety Report 23600869 (Version 1)
Quarter: 2024Q1

REPORT INFORMATION
  Report Type: Spontaneous
  Country: CA (occurrence: None)
  Receive Date: 20240306
  Receipt Date: 20240306
  Transmission Date: 20240410
  Serious: Yes (Other)
  Sender: FDA-Public Use
  Company Number: CA-PFIZER INC-PV202400030299

PATIENT
  Age: 45 Year
  Sex: Male

DRUGS (13)
  1. METHOTREXATE [Suspect]
     Active Substance: METHOTREXATE
     Indication: Rheumatoid arthritis
  2. METHOTREXATE [Suspect]
     Active Substance: METHOTREXATE
     Indication: Mixed connective tissue disease
  3. METHOTREXATE [Suspect]
     Active Substance: METHOTREXATE
     Indication: Systemic scleroderma
  4. METHOTREXATE [Suspect]
     Active Substance: METHOTREXATE
     Indication: Myositis
  5. PREDNISONE [Suspect]
     Active Substance: PREDNISONE
     Indication: Rheumatoid arthritis
  6. PREDNISONE [Suspect]
     Active Substance: PREDNISONE
     Indication: Mixed connective tissue disease
  7. PREDNISONE [Suspect]
     Active Substance: PREDNISONE
     Indication: Systemic scleroderma
  8. PREDNISONE [Suspect]
     Active Substance: PREDNISONE
     Indication: Myositis
  9. FOLIC ACID [Concomitant]
     Active Substance: FOLIC ACID
  10. KETOPROFEN [Concomitant]
     Active Substance: KETOPROFEN
  11. HYDROXYCHLOROQUINE [Concomitant]
     Active Substance: HYDROXYCHLOROQUINE
     Indication: Rheumatoid arthritis
  12. LEFLUNOMIDE [Concomitant]
     Active Substance: LEFLUNOMIDE
     Indication: Rheumatoid arthritis
  13. AZATHIOPRINE [Concomitant]
     Active Substance: AZATHIOPRINE
     Indication: Rheumatoid arthritis

REACTIONS (6)
  - Drug ineffective for unapproved indication [Unknown]
  - Therapeutic product effect incomplete [Unknown]
  - Systemic scleroderma [Unknown]
  - Rheumatoid arthritis [Unknown]
  - Impaired work ability [Unknown]
  - Product use in unapproved indication [Unknown]

NARRATIVE: CASE EVENT DATE: 20240229
